FAERS Safety Report 7389414-8 (Version None)
Quarter: 2011Q2

REPORT INFORMATION
  Report Type: 
  Country: None (occurrence: None)
  Receive Date: 20110401
  Receipt Date: 20110328
  Transmission Date: 20111010
  Serious: Yes (Death, Hospitalization, Other)
  Sender: FDA-Public Use
  Company Number: PHHY2011JP11945

PATIENT
  Age: 68 Year
  Sex: Female
  Weight: 33 kg

DRUGS (1)
  1. METHOTREXATE [Suspect]
     Indication: RHEUMATOID ARTHRITIS
     Dosage: 375 MG/M2, UNK
     Dates: start: 20000101, end: 20090201

REACTIONS (15)
  - VIITH NERVE PARALYSIS [None]
  - ARTHRALGIA [None]
  - INFECTION [None]
  - ANAEMIA [None]
  - AREFLEXIA [None]
  - LOCAL SWELLING [None]
  - ULCER [None]
  - B-CELL LYMPHOMA [None]
  - NECROSIS [None]
  - EPSTEIN-BARR VIRUS INFECTION [None]
  - PNEUMONIA [None]
  - SALIVARY GLAND NEOPLASM [None]
  - PAROTID GLAND ENLARGEMENT [None]
  - FACIAL PAIN [None]
  - LYMPHADENOPATHY [None]
